FAERS Safety Report 11107555 (Version 1)
Quarter: 2015Q2

REPORT INFORMATION
  Report Type: Spontaneous
  Country: US (occurrence: None)
  Receive Date: 20150428
  Receipt Date: 20150428
  Transmission Date: 20150821
  Serious: Yes (Death)
  Sender: FDA-Public Use
  Company Number: 1053087-2015-00001

PATIENT
  Age: 53 Year
  Sex: Male
  Weight: 68.49 kg

DRUGS (1)
  1. SODIUJ CITRATE 4% SOLUTION - HAEMONETICS [Suspect]
     Active Substance: SODIUM CITRATE
     Indication: APHERESIS
     Dosage: 1 BAG/PROCEDURE
     Route: 042
     Dates: start: 20150326

REACTIONS (3)
  - Sudden death [None]
  - Fall [None]
  - Road traffic accident [None]

NARRATIVE: CASE EVENT DATE: 20150326
